FAERS Safety Report 14181198 (Version 1)
Quarter: 2017Q4

REPORT INFORMATION
  Report Type: Report from Study
  Country: JP (occurrence: JP)
  Receive Date: 20171112
  Receipt Date: 20171112
  Transmission Date: 20180321
  Serious: Yes (Death)
  Sender: FDA-Public Use
  Company Number: JP-TEVA-824840ROM

PATIENT
  Age: 54 Year
  Sex: Female

DRUGS (8)
  1. VINCRISTINE [Suspect]
     Active Substance: VINCRISTINE
     Indication: OCULAR LYMPHOMA
     Dosage: 1.4 MG/M2; ON DAY 2
     Route: 065
  2. CYTARABINE. [Suspect]
     Active Substance: CYTARABINE
     Indication: OCULAR LYMPHOMA
     Dosage: 2 CYCLES; EACH CONSISTING OF 2 DOSES OF 3 G/M2 WITH 24HR INTERVAL
     Route: 042
  3. PROCARBAZINE [Suspect]
     Active Substance: PROCARBAZINE
     Indication: OCULAR LYMPHOMA
     Dosage: 100MG/M2/DAY; ON DAYS 2 TO 8 DURING ODD NUMBERED CYCLES
     Route: 065
  4. RITUXIMAB. [Suspect]
     Active Substance: RITUXIMAB
     Indication: OCULAR LYMPHOMA
     Dosage: 375MG/M2; ON DAY 1
     Route: 065
  5. METHOTREXATE. [Suspect]
     Active Substance: METHOTREXATE
     Indication: OCULAR LYMPHOMA
     Dosage: 400M MICROG/0.1ML; 8 WEEKLY INJECTIONS FOLLOWED BY 2 MONTHLY INJECTIONS
     Route: 050
  6. FOLINIC ACID [Suspect]
     Active Substance: LEUCOVORIN
     Indication: OCULAR LYMPHOMA
     Dosage: ON DAY 2; RESCUE MEDICATION
     Route: 065
  7. METHOTREXATE. [Suspect]
     Active Substance: METHOTREXATE
     Indication: OCULAR LYMPHOMA
     Dosage: 400M MICROG/0.1ML; 2 MONTHLY INJECTIONS
     Route: 050
  8. METHOTREXATE. [Suspect]
     Active Substance: METHOTREXATE
     Indication: OCULAR LYMPHOMA
     Dosage: 3.5G/M2; ON DAY 2
     Route: 065

REACTIONS (2)
  - Meningoencephalitis herpetic [Fatal]
  - Pneumonia aspiration [Fatal]
